FAERS Safety Report 8069662-4 (Version None)
Quarter: 2012Q1

REPORT INFORMATION
  Report Type: 
  Country: None (occurrence: None)
  Receive Date: 20120125
  Receipt Date: 20120120
  Transmission Date: 20120608
  Serious: Yes (Other)
  Sender: FDA-Public Use
  Company Number: US-PFIZER INC-2012017354

PATIENT
  Sex: Female
  Weight: 81.633 kg

DRUGS (2)
  1. LYRICA [Suspect]
     Indication: MOOD SWINGS
     Dosage: 75 MG, DAILY
     Route: 048
     Dates: start: 20070101
  2. LYRICA [Suspect]
     Indication: MYALGIA

REACTIONS (3)
  - PAIN IN EXTREMITY [None]
  - INFLAMMATION [None]
  - TENOSYNOVITIS STENOSANS [None]
